FAERS Safety Report 9052635 (Version 2)
Quarter: 2013Q1

REPORT INFORMATION
  Report Type: Report from Study
  Country: ES (occurrence: ES)
  Receive Date: 20130128
  Receipt Date: 20130128
  Transmission Date: 20140127
  Serious: Yes (Hospitalization)
  Sender: FDA-Public Use
  Company Number: ES-SANOFI-AVENTIS-2013SA001381

PATIENT
  Age: 71 Year
  Sex: Male
  Weight: 91.9 kg

DRUGS (8)
  1. DOCETAXEL [Suspect]
     Indication: LUNG NEOPLASM MALIGNANT
     Route: 042
     Dates: start: 20121025, end: 20121226
  2. BUDESONIDE/FORMOTEROL [Concomitant]
  3. SPIRIVA [Concomitant]
  4. DACORTIN [Concomitant]
  5. VENTOLIN /00139501/ [Concomitant]
     Route: 045
  6. MEIACT [Concomitant]
  7. ORFIDAL [Concomitant]
  8. ACETYLCYSTEINE [Concomitant]

REACTIONS (5)
  - Chronic obstructive pulmonary disease [Recovered/Resolved]
  - Respiratory tract infection [Recovered/Resolved]
  - Pyrexia [Recovered/Resolved]
  - Cough [Recovered/Resolved]
  - Sputum purulent [Recovered/Resolved]
